FAERS Safety Report 7736574-2 (Version None)
Quarter: 2011Q3

REPORT INFORMATION
  Report Type: 
  Country: None (occurrence: None)
  Receive Date: 20110908
  Receipt Date: 20110826
  Transmission Date: 20111222
  Serious: No
  Sender: FDA-Public Use
  Company Number: US-B.I. PHARMACEUTICALS,INC./RIDGEFIELD-2011-BP-20903BP

PATIENT
  Age: 70 Year
  Sex: Female

DRUGS (13)
  1. SOMA [Concomitant]
     Indication: PAIN
     Route: 048
  2. SYMBICORT [Concomitant]
     Indication: CHRONIC OBSTRUCTIVE PULMONARY DISEASE
     Route: 055
  3. DITROPAN [Concomitant]
     Indication: BLADDER SPASM
     Dosage: 5 MG
     Route: 048
  4. ALBUTEROL [Concomitant]
     Indication: CHRONIC OBSTRUCTIVE PULMONARY DISEASE
     Route: 055
  5. COMBIVENT [Concomitant]
     Indication: CHRONIC OBSTRUCTIVE PULMONARY DISEASE
     Route: 055
  6. METFORMIN HCL [Concomitant]
     Indication: DIABETES MELLITUS
     Dosage: 1000 MG
     Route: 048
  7. DESOLAX [Concomitant]
     Route: 048
  8. SPIRIVA [Suspect]
     Indication: CHRONIC OBSTRUCTIVE PULMONARY DISEASE
     Dosage: 18 MCG
     Route: 055
     Dates: start: 20110819
  9. CENTRUM SILVER VITAMIN [Concomitant]
     Indication: SUPPLEMENTATION THERAPY
     Route: 048
  10. LORATADINE [Concomitant]
     Indication: SEASONAL ALLERGY
     Route: 048
  11. OXYGEN [Concomitant]
  12. ULTRAM [Concomitant]
     Indication: PAIN
     Dosage: 50 MG
     Route: 048
  13. TYLENOL-500 [Concomitant]
     Indication: PAIN
     Route: 048

REACTIONS (3)
  - PHARYNGEAL OEDEMA [None]
  - DYSPHAGIA [None]
  - OROPHARYNGEAL PAIN [None]
